FAERS Safety Report 21776300 (Version 1)
Quarter: 2022Q4

REPORT INFORMATION
  Report Type: Spontaneous
  Country: US (occurrence: US)
  Receive Date: 20221226
  Receipt Date: 20221226
  Transmission Date: 20230113
  Serious: No
  Sender: FDA-Public Use
  Company Number: US-MIGRATION_PFIZER-2022BHV002625

PATIENT
  Age: 55 Year
  Sex: Female

DRUGS (1)
  1. NURTEC ODT [Suspect]
     Active Substance: RIMEGEPANT SULFATE
     Indication: Product used for unknown indication
     Dosage: INDICATION FOR USE (ACUTE / PREVENTION): ACUTE
     Route: 048

REACTIONS (4)
  - Dry mouth [Unknown]
  - Productive cough [Unknown]
  - Throat clearing [Unknown]
  - Nausea [Unknown]
